FAERS Safety Report 17124177 (Version 5)
Quarter: 2020Q1

REPORT INFORMATION
  Report Type: Spontaneous
  Country: US (occurrence: US)
  Receive Date: 20191206
  Receipt Date: 20200127
  Transmission Date: 20200409
  Serious: Yes (Life-Threatening, Other)
  Sender: FDA-Public Use
  Company Number: US-SHIRE-US201942034

PATIENT
  Sex: Female

DRUGS (4)
  1. CALCITRIOL. [Concomitant]
     Active Substance: CALCITRIOL
     Indication: PRODUCT USED FOR UNKNOWN INDICATION
  2. CALCIUM [Concomitant]
     Active Substance: CALCIUM
     Indication: PRODUCT USED FOR UNKNOWN INDICATION
  3. FORTEO [Concomitant]
     Active Substance: TERIPARATIDE
     Indication: PRODUCT USED FOR UNKNOWN INDICATION
  4. NATPARA (PARATHYROID HORMONE) [Suspect]
     Active Substance: PARATHYROID HORMONE
     Indication: POST PROCEDURAL HYPOPARATHYROIDISM
     Dosage: 50 MICROGRAM, 1X/DAY:QD
     Route: 058
     Dates: start: 201905

REACTIONS (18)
  - Hypocalcaemia [Unknown]
  - Insomnia [Unknown]
  - Amnesia [Unknown]
  - Tetany [Unknown]
  - Headache [Unknown]
  - Arthralgia [Unknown]
  - Hypoaesthesia [Unknown]
  - Long QT syndrome [Unknown]
  - Hypertension [Recovered/Resolved]
  - Quality of life decreased [Unknown]
  - Recalled product [Unknown]
  - Asthenia [Unknown]
  - Fatigue [Unknown]
  - Myalgia [Unknown]
  - Memory impairment [Unknown]
  - Bone pain [Unknown]
  - Chest pain [Unknown]
  - Paraesthesia [Unknown]
